FAERS Safety Report 24432325 (Version 2)
Quarter: 2024Q4

REPORT INFORMATION
  Report Type: Spontaneous
  Country: US (occurrence: US)
  Receive Date: 20241014
  Receipt Date: 20241202
  Transmission Date: 20250115
  Serious: No
  Sender: SANOFI AVENTIS
  Company Number: US-SA-2024SA284188

PATIENT
  Age: 67 Year
  Sex: Female

DRUGS (2)
  1. DUPIXENT [Suspect]
     Active Substance: DUPILUMAB
     Indication: Dermatitis atopic
     Dosage: 600 MG, 1X
     Route: 058
  2. DUPIXENT [Suspect]
     Active Substance: DUPILUMAB
     Dosage: 300 MG, QOW
     Route: 058

REACTIONS (6)
  - Alopecia [Not Recovered/Not Resolved]
  - Vascular rupture [Unknown]
  - Arterial occlusive disease [Not Recovered/Not Resolved]
  - Rash macular [Not Recovered/Not Resolved]
  - Vision blurred [Not Recovered/Not Resolved]
  - Dry eye [Unknown]
